FAERS Safety Report 8655478 (Version 3)
Quarter: 2019Q2

REPORT INFORMATION
  Report Type: Spontaneous
  Country: FR (occurrence: FR)
  Receive Date: 20120709
  Receipt Date: 20190405
  Transmission Date: 20190711
  Serious: Yes (Death, Hospitalization)
  Sender: FDA-Public Use
  Company Number: FR-ALLERGAN-1209285US

PATIENT
  Sex: Male

DRUGS (11)
  1. MIANSERINE [Concomitant]
     Active Substance: MIANSERIN HYDROCHLORIDE
     Dosage: 2 DF, QD
  2. SIFROL LP [Concomitant]
     Active Substance: PRAMIPEXOLE
  3. IKARAN [Concomitant]
     Active Substance: DIHYDROERGOTAMINE MESYLATE
     Dosage: 2 DF, QD
  4. FORLAX [Concomitant]
     Active Substance: POLYETHYLENE GLYCOL 4000
  5. BOTOX [Suspect]
     Active Substance: ONABOTULINUMTOXINA
     Indication: FACIAL SPASM
     Dosage: 15 UNITS, SINGLE
     Dates: start: 20120330, end: 20120330
  6. MANTADIX [Concomitant]
     Active Substance: AMANTADINE HYDROCHLORIDE
  7. THIOCOLCHICOSIDE [Concomitant]
     Active Substance: THIOCOLCHICOSIDE
     Dosage: 3 DF, QD
  8. DYSPORT [Suspect]
     Active Substance: ABOBOTULINUMTOXINA
     Indication: MUSCLE SPASMS
     Dosage: 150 UNITS, SINGLE
     Dates: start: 20120330, end: 20120330
  9. MADOPAR DISPERSIBL [Concomitant]
     Active Substance: BENSERAZIDE HYDROCHLORIDE\LEVODOPA
     Dosage: UNK
  10. MODOPAR GEL LEVODOPA [Concomitant]
  11. CERIS [Concomitant]
     Active Substance: TROSPIUM CHLORIDE
     Dosage: 2 DF, QD

REACTIONS (6)
  - Diplopia [Recovered/Resolved]
  - Respiratory disorder [Recovered/Resolved]
  - Head injury [Fatal]
  - Muscular weakness [Recovered/Resolved]
  - Dysphagia [Recovered/Resolved]
  - Dysphonia [Recovered/Resolved]

NARRATIVE: CASE EVENT DATE: 20120401
